FAERS Safety Report 8043311-3 (Version None)
Quarter: 2012Q1

REPORT INFORMATION
  Report Type: 
  Country: None (occurrence: None)
  Receive Date: 20120112
  Receipt Date: 20120109
  Transmission Date: 20120608
  Serious: Yes (Other)
  Sender: FDA-Public Use
  Company Number: AR-GLAXOSMITHKLINE-A0960799A

PATIENT
  Sex: Male

DRUGS (2)
  1. ROSUVASTATIN [Concomitant]
  2. PAROXETINE HCL [Suspect]
     Indication: ANXIETY DISORDER
     Dosage: 10MG PER DAY
     Route: 048
     Dates: start: 20120101

REACTIONS (4)
  - EYE DISCHARGE [None]
  - HAEMORRHAGE [None]
  - CAPILLARY FRAGILITY [None]
  - EJACULATION DELAYED [None]
